FAERS Safety Report 6229464-8 (Version None)
Quarter: 2009Q2

REPORT INFORMATION
  Report Type: 
  Country: None (occurrence: None)
  Receive Date: 20090615
  Receipt Date: 20090610
  Transmission Date: 20091009
  Serious: Yes (Hospitalization)
  Sender: FDA-Public Use
  Company Number: A0759696A

PATIENT
  Sex: Male
  Weight: 52 kg

DRUGS (8)
  1. LAPATINIB [Suspect]
     Indication: GASTRIC CANCER
     Dosage: 1250MG PER DAY
     Route: 048
  2. CAPECITABINE [Suspect]
     Indication: GASTRIC CANCER
     Dosage: 2000MGM2 PER DAY
     Route: 048
  3. MAGNESIUM OXIDE [Suspect]
     Dosage: 1500MG PER DAY
     Dates: end: 20081124
  4. BETADINE [Concomitant]
     Dosage: 10ML FOUR TIMES PER DAY
     Route: 002
     Dates: start: 20081129
  5. TANTUM [Concomitant]
     Dosage: 10ML FOUR TIMES PER DAY
     Route: 002
     Dates: start: 20081129
  6. BEARSE [Concomitant]
     Dosage: 2TAB TWICE PER DAY
     Route: 048
     Dates: start: 20081201
  7. RANITIDINE [Concomitant]
     Dosage: 150MG THREE TIMES PER DAY
     Route: 042
     Dates: start: 20090208
  8. KABIVEN [Concomitant]
     Dosage: 1500ML CONTINUOUS
     Route: 042
     Dates: start: 20090208

REACTIONS (2)
  - ANOREXIA [None]
  - DIARRHOEA [None]
